FAERS Safety Report 5211130-9 (Version None)
Quarter: 2006Q4

REPORT INFORMATION
  Report Type: 
  Country: None (occurrence: None)
  Receive Date: 20061130
  Receipt Date: 20060629
  Transmission Date: 20070319
  Serious: Yes (Other)
  Sender: FDA-Public Use
  Company Number: WAES 0411USA02734

PATIENT
  Age: 65 Year
  Sex: Female
  Weight: 63.5036 kg

DRUGS (6)
  1. FOSAMAX [Suspect]
     Indication: OSTEOPENIA
     Dosage: SEE IMAGE
     Route: 048
     Dates: end: 20040101
  2. FOSAMAX [Suspect]
     Indication: OSTEOPOROSIS
     Dosage: SEE IMAGE
     Route: 048
     Dates: end: 20040101
  3. FOSAMAX [Suspect]
     Indication: OSTEOPENIA
     Dosage: SEE IMAGE
     Route: 048
     Dates: start: 19990101
  4. FOSAMAX [Suspect]
     Indication: OSTEOPOROSIS
     Dosage: SEE IMAGE
     Route: 048
     Dates: start: 19990101
  5. AREDIA [Suspect]
     Indication: OSTEITIS DEFORMANS
     Dosage: IV
     Route: 042
     Dates: start: 19900101, end: 19900101
  6. AREDIA [Suspect]
     Indication: OSTEITIS DEFORMANS
     Dosage: Q3-6 MONTHS MG IV
     Route: 042
     Dates: start: 19910101, end: 19950101

REACTIONS (3)
  - IMPAIRED HEALING [None]
  - OSTEONECROSIS [None]
  - TOOTH DISORDER [None]
